FAERS Safety Report 8118339-5 (Version None)
Quarter: 2012Q1

REPORT INFORMATION
  Report Type: 
  Country: None (occurrence: None)
  Receive Date: 20120207
  Receipt Date: 20120202
  Transmission Date: 20120608
  Serious: Yes (Hospitalization)
  Sender: FDA-Public Use
  Company Number: US-PFIZER INC-2012029048

PATIENT
  Sex: Female
  Weight: 75.283 kg

DRUGS (2)
  1. ACETYLSALICYLIC ACID [Concomitant]
     Dosage: UNK, DAILY
  2. DETROL LA [Suspect]
     Indication: RENAL DISORDER
     Dosage: UNK, DAILY

REACTIONS (1)
  - CARDIAC DISORDER [None]
